FAERS Safety Report 8624126-1 (Version None)
Quarter: 2012Q3

REPORT INFORMATION
  Report Type: 
  Country: None (occurrence: None)
  Receive Date: 20120827
  Receipt Date: 20120820
  Transmission Date: 20120928
  Serious: Yes (Hospitalization)
  Sender: FDA-Public Use
  Company Number: ES-JNJFOC-20120810620

PATIENT
  Sex: Male
  Weight: 80 kg

DRUGS (2)
  1. MESALAMINE [Concomitant]
     Indication: COLITIS ULCERATIVE
     Dosage: DOSAGE AND ROUTE ARE ILLEGIBLE
  2. REMICADE [Suspect]
     Indication: COLITIS ULCERATIVE
     Route: 042

REACTIONS (1)
  - PULMONARY SARCOIDOSIS [None]
